FAERS Safety Report 20543995 (Version 3)
Quarter: 2022Q2

REPORT INFORMATION
  Report Type: Report from Study
  Country: US (occurrence: None)
  Receive Date: 20220303
  Receipt Date: 20220410
  Transmission Date: 20220720
  Serious: Yes (Death, Hospitalization)
  Sender: FDA-Public Use
  Company Number: US-Merck Healthcare KGaA-9303680

PATIENT
  Age: 58 Year
  Sex: Female

DRUGS (1)
  1. SEROSTIM [Suspect]
     Active Substance: SOMATROPIN
     Indication: Cachexia
     Route: 058

REACTIONS (3)
  - Death [Fatal]
  - Acute kidney injury [Unknown]
  - Arrhythmia [Unknown]

NARRATIVE: CASE EVENT DATE: 20211101
